FAERS Safety Report 8370677-7 (Version None)
Quarter: 2012Q2

REPORT INFORMATION
  Report Type: 
  Country: None (occurrence: None)
  Receive Date: 20120518
  Receipt Date: 20120514
  Transmission Date: 20120825
  Serious: No
  Sender: FDA-Public Use
  Company Number: US-PFIZER INC-2012117409

PATIENT
  Age: 63 Year
  Sex: Female

DRUGS (3)
  1. PREMPRO [Suspect]
     Dosage: 0.3 MG/1.5 MG EVERY OTHER DAY
     Route: 048
  2. MAXALT [Concomitant]
     Indication: MIGRAINE
     Dosage: UNK
  3. PREMPRO [Suspect]
     Indication: VAGINAL DISORDER
     Dosage: 0.3 MG/1.5 MG DAILY
     Route: 048

REACTIONS (3)
  - INAPPROPRIATE SCHEDULE OF DRUG ADMINISTRATION [None]
  - MIGRAINE [None]
  - MALAISE [None]
